FAERS Safety Report 9063926 (Version 1)
Quarter: 2013Q1

REPORT INFORMATION
  Report Type: Report from Study
  Country: US (occurrence: US)
  Receive Date: 20130130
  Receipt Date: 20130130
  Transmission Date: 20140127
  Serious: No
  Sender: FDA-Public Use
  Company Number: US-ABBOTT-12P-163-0943986-00

PATIENT
  Age: 21 None
  Sex: Female

DRUGS (13)
  1. HUMIRA 40 MG/0.8 ML PEN [Suspect]
     Indication: CROHN^S DISEASE
     Route: 058
     Dates: start: 201205, end: 201205
  2. HUMIRA 40 MG/0.8 ML PEN [Suspect]
     Route: 058
     Dates: start: 201205, end: 201205
  3. HUMIRA 40 MG/0.8 ML PEN [Suspect]
     Route: 058
     Dates: start: 201205
  4. ASACOL [Concomitant]
     Indication: CROHN^S DISEASE
     Dosage: 3 X DAY
  5. SEASONIQUE [Concomitant]
     Indication: CONTRACEPTION
     Dosage: 1X DAY
  6. ATIVAN [Concomitant]
     Indication: ANXIETY
     Dosage: 1X DAY
  7. MULTIVITAMIN [Concomitant]
     Indication: MINERAL SUPPLEMENTATION
     Dosage: 1 X DAY
  8. PRILOSEC [Concomitant]
     Indication: DYSPEPSIA
     Dosage: 1 X DAY
  9. CALCIUM [Concomitant]
     Indication: MINERAL SUPPLEMENTATION
     Dosage: 1 X DAY
  10. CLARITIN-D [Concomitant]
     Indication: HYPERSENSITIVITY
     Dosage: OTC 5/120 MG 2 X DAY
  11. VICODIN [Concomitant]
     Indication: PAIN
     Dosage: 5/500 MG ONE EVERY 4 TO 6 HOURS
  12. PHILLIPS COLON HEALTH [Concomitant]
     Indication: FLATULENCE
     Dosage: OTC 1 X DAY
  13. PHILLIPS COLON HEALTH [Concomitant]
     Indication: ABDOMINAL DISTENSION

REACTIONS (8)
  - Injection site reaction [Recovered/Resolved]
  - Injection site erythema [Recovered/Resolved]
  - Injection site induration [Recovered/Resolved]
  - Injection site pruritus [Recovered/Resolved]
  - Injection site erythema [Recovered/Resolved]
  - Injection site swelling [Recovered/Resolved]
  - Injection site swelling [Recovered/Resolved]
  - Injection site reaction [Recovered/Resolved]
